FAERS Safety Report 26191138 (Version 1)
Quarter: 2025Q4

REPORT INFORMATION
  Report Type: Spontaneous
  Country: US (occurrence: None)
  Receive Date: 20251222
  Receipt Date: 20251222
  Transmission Date: 20260118
  Serious: No
  Sender: FDA-CTU
  Company Number: None

PATIENT
  Age: 2 Month
  Sex: Female

DRUGS (4)
  1. HEMANGEOL [Suspect]
     Active Substance: PROPRANOLOL HYDROCHLORIDE
     Indication: Haemangioma
     Dosage: FREQUENCY : TWICE A DAY;
     Route: 048
     Dates: start: 20251215
  2. FAMOTIDINE [Concomitant]
     Active Substance: FAMOTIDINE
  3. D-VI-SOL DROPS [Concomitant]
  4. SIMETHICONE (DIMETHICONE) [Concomitant]
     Active Substance: DIMETHICONE

REACTIONS (2)
  - Somnolence [None]
  - Peripheral coldness [None]

NARRATIVE: CASE EVENT DATE: 20251215
